FAERS Safety Report 17673903 (Version 2)
Quarter: 2023Q2

REPORT INFORMATION
  Report Type: Spontaneous
  Country: CA (occurrence: CA)
  Receive Date: 20200415
  Receipt Date: 20230420
  Transmission Date: 20230722
  Serious: No
  Sender: FDA-Public Use
  Company Number: CA-BOEHRINGERINGELHEIM-2020-BI-019917

PATIENT
  Age: 69 Year
  Sex: Male

DRUGS (1)
  1. TELMISARTAN [Suspect]
     Active Substance: TELMISARTAN
     Indication: Blood pressure management
     Route: 065

REACTIONS (3)
  - Product substitution issue [Unknown]
  - Blood pressure inadequately controlled [Unknown]
  - Therapeutic product ineffective [Unknown]
